FAERS Safety Report 7553906-9 (Version None)
Quarter: 2011Q2

REPORT INFORMATION
  Report Type: 
  Country: None (occurrence: None)
  Receive Date: 20110617
  Receipt Date: 20110531
  Transmission Date: 20111010
  Serious: No
  Sender: FDA-Public Use
  Company Number: US-B.I. PHARMACEUTICALS,INC./RIDGEFIELD-2011-BP-08297BP

PATIENT
  Sex: Female
  Weight: 80 kg

DRUGS (15)
  1. VITAMIN E [Concomitant]
     Dosage: 400 U
  2. LUMIGAN [Concomitant]
  3. BUSPAR [Concomitant]
  4. ENABLEX [Concomitant]
     Dosage: 7.5 MG
  5. CALCIUM CARBONATE [Concomitant]
     Dosage: 600 MG
  6. SOTALOL HCL [Concomitant]
     Dosage: 80 MG
  7. SYNTHROID [Concomitant]
     Dosage: 2.5 MG
  8. ICAPS [Concomitant]
  9. D-3 [Concomitant]
     Dosage: 1000 U
  10. PRADAXA [Suspect]
     Indication: ATRIAL FIBRILLATION
     Dosage: 300 MG
     Route: 048
     Dates: start: 20101210, end: 20101227
  11. LOVAZA [Concomitant]
     Dosage: 1200 MG
  12. COUMADIN [Concomitant]
     Dosage: 2.5 MG
  13. ESTRADIOL [Concomitant]
     Dosage: 1 MG
  14. NEXIUM [Concomitant]
     Dosage: 40 MG
  15. FOSAMAX [Concomitant]

REACTIONS (4)
  - ABDOMINAL PAIN UPPER [None]
  - DRUG INTOLERANCE [None]
  - ABDOMINAL DISCOMFORT [None]
  - CHEST PAIN [None]
